FAERS Safety Report 12555945 (Version 1)
Quarter: 2016Q3

REPORT INFORMATION
  Report Type: Spontaneous
  Country: US (occurrence: None)
  Receive Date: 20160713
  Receipt Date: 20160713
  Transmission Date: 20161109
  Serious: Yes (Other)
  Sender: FDA-Public Use
  Company Number: None

PATIENT
  Age: 69 Year
  Sex: Female

DRUGS (6)
  1. FOLIC ACID. [Concomitant]
     Active Substance: FOLIC ACID
  2. AVASTIN [Suspect]
     Active Substance: BEVACIZUMAB
     Indication: NEOVASCULAR AGE-RELATED MACULAR DEGENERATION
     Dosage: SINGLE INJECTION ONCE INTRAVITREAL INJECTION
     Dates: start: 20160414, end: 20160414
  3. BIOTIN [Concomitant]
     Active Substance: BIOTIN
  4. CALCIUM CARBONATE. [Concomitant]
     Active Substance: CALCIUM CARBONATE
  5. METHOTREXATE. [Concomitant]
     Active Substance: METHOTREXATE
  6. LOSARTAN-HYDROCHLOROTHIAZIDE [Concomitant]
     Active Substance: HYDROCHLOROTHIAZIDE\LOSARTAN

REACTIONS (3)
  - Eye irritation [None]
  - Injection site irritation [None]
  - Vitreous floaters [None]

NARRATIVE: CASE EVENT DATE: 20160414
